FAERS Safety Report 5251365-2 (Version None)
Quarter: 2007Q1

REPORT INFORMATION
  Report Type: 
  Country: None (occurrence: None)
  Receive Date: 20070228
  Receipt Date: 20060428
  Transmission Date: 20070707
  Serious: No
  Sender: FDA-Public Use
  Company Number: US-GLAXOSMITHKLINE-A0603642A

PATIENT
  Age: 48 Year
  Sex: Male

DRUGS (5)
  1. LAMICTAL [Suspect]
     Indication: BIPOLAR DISORDER
     Dosage: 50MG PER DAY
     Route: 048
     Dates: start: 20060412
  2. PROPRANOLOL [Concomitant]
  3. COZAAR [Concomitant]
  4. LIPITOR [Concomitant]
  5. XANAX [Concomitant]

REACTIONS (2)
  - EYE PAIN [None]
  - PRURITUS [None]
